FAERS Safety Report 9250459 (Version 2)
Quarter: 2013Q4

REPORT INFORMATION
  Report Type: Spontaneous
  Country: FR (occurrence: FR)
  Receive Date: 20130424
  Receipt Date: 20131209
  Transmission Date: 20140711
  Serious: Yes (Hospitalization)
  Sender: FDA-Public Use
  Company Number: FR-009507513-1304FRA008187

PATIENT
  Age: 24 Year
  Sex: Male

DRUGS (6)
  1. TIENAM 500MG/500MG, POUDRE POUR PERFUSION [Suspect]
     Dosage: 3 G, QD
     Route: 042
     Dates: start: 20130310, end: 20130319
  2. TRIFLUCAN [Suspect]
     Dosage: UNK
     Route: 048
     Dates: start: 20130309, end: 20130318
  3. CIFLOX (CIPROFLOXACIN HYDROCHLORIDE) [Suspect]
     Dosage: 400 MG, BID
     Route: 042
     Dates: start: 20130310, end: 20130319
  4. ZYVOXID [Concomitant]
     Dosage: 600 MG, BID
     Route: 048
     Dates: start: 20130312
  5. BACTRIM FORTE [Concomitant]
     Dosage: UNK
     Route: 048
     Dates: start: 20130225
  6. NEUPOGEN [Concomitant]
     Dosage: UNK
     Route: 042
     Dates: start: 20130309, end: 20130313

REACTIONS (2)
  - Cholestasis [Recovered/Resolved]
  - Hepatocellular injury [Recovered/Resolved]
